FAERS Safety Report 16642883 (Version 1)
Quarter: 2019Q3

REPORT INFORMATION
  Report Type: Spontaneous
  Country: CN (occurrence: CN)
  Receive Date: 20190729
  Receipt Date: 20190729
  Transmission Date: 20191004
  Serious: Yes (Hospitalization, Other)
  Sender: FDA-Public Use
  Company Number: CN-SA-2019SA200290

PATIENT
  Age: 78 Year
  Sex: Male
  Weight: 50 kg

DRUGS (3)
  1. SORAFENIB [SORAFENIB TOSILATE] [Suspect]
     Active Substance: SORAFENIB TOSYLATE
     Indication: NEOPLASM MALIGNANT
     Dosage: 0.4 G, BID
     Route: 048
     Dates: start: 20190628, end: 20190629
  2. LEVOFLOXACIN. [Suspect]
     Active Substance: LEVOFLOXACIN
     Indication: CHRONIC OBSTRUCTIVE PULMONARY DISEASE
     Dosage: 0.2 G, BID
     Route: 042
     Dates: start: 20190628, end: 20190707
  3. HARNAL [Suspect]
     Active Substance: TAMSULOSIN HYDROCHLORIDE
     Indication: BENIGN PROSTATIC HYPERPLASIA
     Dosage: 0.2 MG, QD
     Route: 048
     Dates: start: 20190628, end: 20190712

REACTIONS (13)
  - Wound infection [Recovering/Resolving]
  - Productive cough [Unknown]
  - Sleep talking [Unknown]
  - Haemoglobin decreased [Recovering/Resolving]
  - Red blood cell count decreased [Recovering/Resolving]
  - Dyspnoea [Unknown]
  - Infection [Unknown]
  - Wheezing [Unknown]
  - Epistaxis [Recovering/Resolving]
  - Rash pustular [Recovering/Resolving]
  - Pruritus [Recovering/Resolving]
  - Decreased appetite [Recovering/Resolving]
  - Asthenia [Unknown]

NARRATIVE: CASE EVENT DATE: 20190628
